FAERS Safety Report 6335301-3 (Version None)
Quarter: 2009Q3

REPORT INFORMATION
  Report Type: 
  Country: None (occurrence: None)
  Receive Date: 20090831
  Receipt Date: 20090823
  Transmission Date: 20100115
  Serious: Yes (Hospitalization)
  Sender: FDA-Public Use
  Company Number: DE-BIOGENIDEC-2007BI024834

PATIENT
  Age: 37 Year
  Sex: Male

DRUGS (3)
  1. TYSABRI [Suspect]
     Indication: MULTIPLE SCLEROSIS
     Route: 042
     Dates: start: 20070920, end: 20071019
  2. PREGABALIN [Concomitant]
     Indication: PAIN
  3. PANTOZOL [Concomitant]
     Indication: GASTRITIS
     Route: 048

REACTIONS (1)
  - TYPE IV HYPERSENSITIVITY REACTION [None]
